FAERS Safety Report 24279427 (Version 1)
Quarter: 2024Q3

REPORT INFORMATION
  Report Type: Spontaneous
  Country: CN (occurrence: CN)
  Receive Date: 20240903
  Receipt Date: 20240903
  Transmission Date: 20241016
  Serious: Yes (Hospitalization)
  Sender: PAREXEL
  Company Number: CN-KAMADA LIMITED-2024-KAM-CN000312

PATIENT

DRUGS (3)
  1. HUMAN RABIES VIRUS IMMUNE GLOBULIN [Suspect]
     Active Substance: HUMAN RABIES VIRUS IMMUNE GLOBULIN
     Indication: Rabies immunisation
     Dosage: 1 DOSAGE FORM
  2. RABIES VACCINE [Concomitant]
     Active Substance: RABIES VACCINE
     Indication: Rabies immunisation
     Dosage: 5-INJECTION REGIMEN, WITH 1 ML OF VACCINE ADMINISTERED INTRAMUSCULARLY ON DAYS 0, 3, 7, 14, AND 28 D
     Route: 030
  3. TETANUS ANTITOXIN [Concomitant]
     Active Substance: TETANUS ANTITOXIN
     Indication: Animal bite
     Dosage: UNK

REACTIONS (1)
  - Eyelid ptosis [Recovered/Resolved]
